FAERS Safety Report 18506372 (Version 1)
Quarter: 2020Q4

REPORT INFORMATION
  Report Type: Spontaneous
  Country: JP (occurrence: JP)
  Receive Date: 20201116
  Receipt Date: 20201116
  Transmission Date: 20210114
  Serious: Yes (Other)
  Sender: FDA-Public Use
  Company Number: JP-PFIZER INC-2020448162

PATIENT

DRUGS (2)
  1. AVELUMAB [Suspect]
     Active Substance: AVELUMAB
  2. AXITINIB [Suspect]
     Active Substance: AXITINIB

REACTIONS (1)
  - Myocarditis [Unknown]
